FAERS Safety Report 7070040-5 (Version None)
Quarter: 2010Q4

REPORT INFORMATION
  Report Type: 
  Country: None (occurrence: None)
  Receive Date: 20101028
  Receipt Date: 20100805
  Transmission Date: 20110411
  Serious: No
  Sender: FDA-Public Use
  Company Number: US-WYE-H16787910

PATIENT
  Age: 67 Year
  Sex: Female
  Weight: 54.48 kg

DRUGS (4)
  1. ADVIL [Suspect]
     Indication: INFLAMMATION
     Dosage: ONE LIQUI-GEL AS NEEDED
     Route: 048
     Dates: start: 20050101
  2. ADVIL [Suspect]
     Indication: TENDONITIS
  3. ADVIL [Suspect]
     Indication: HEADACHE
  4. CLARITIN [Concomitant]

REACTIONS (1)
  - DRUG EFFECT DECREASED [None]
